FAERS Safety Report 9320458 (Version 4)
Quarter: 2014Q2

REPORT INFORMATION
  Report Type: Spontaneous
  Country: IT (occurrence: IT)
  Receive Date: 20130530
  Receipt Date: 20140423
  Transmission Date: 20141212
  Serious: Yes (Hospitalization, Other)
  Sender: FDA-Public Use
  Company Number: IT-PFIZER INC-2013162720

PATIENT
  Age: 41 Year
  Sex: Female

DRUGS (2)
  1. ALPRAZOLAM [Suspect]
     Indication: DEPRESSION
     Dosage: 0.25 MG, UNK
     Route: 048
     Dates: start: 20130125, end: 20130125
  2. PAROXETINE [Suspect]
     Indication: DEPRESSION
     Dosage: 1120 MG, TOTAL (20 MG TABLETS)
     Route: 048
     Dates: start: 20130125, end: 20130125

REACTIONS (8)
  - Overdose [Recovering/Resolving]
  - Suicide attempt [Recovering/Resolving]
  - Sopor [Recovering/Resolving]
  - Tremor [Recovering/Resolving]
  - Nausea [Recovering/Resolving]
  - Unresponsive to stimuli [Recovering/Resolving]
  - Hypoxia [Recovering/Resolving]
  - Drug abuse [Recovering/Resolving]
